FAERS Safety Report 10260553 (Version 2)
Quarter: 2014Q3

REPORT INFORMATION
  Report Type: Report from Study
  Country: DE (occurrence: DE)
  Receive Date: 20140626
  Receipt Date: 20140708
  Transmission Date: 20150326
  Serious: Yes (Hospitalization)
  Sender: FDA-Public Use
  Company Number: DE-ROCHE-1423757

PATIENT
  Sex: Female
  Weight: 59 kg

DRUGS (4)
  1. BEVACIZUMAB [Suspect]
     Active Substance: BEVACIZUMAB
     Indication: OVARIAN CANCER
     Dosage: LAST DOSE PRIOR TO SAE: 17/JUN/2014
     Route: 042
     Dates: start: 20131113
  2. GEMCITABINE [Suspect]
     Active Substance: GEMCITABINE\GEMCITABINE HYDROCHLORIDE
     Indication: OVARIAN CANCER
     Dosage: LAST DOSE PRIOR TO SAE: 11/MAR/2014
     Route: 042
     Dates: start: 20131113
  3. CARBOPLATIN. [Suspect]
     Active Substance: CARBOPLATIN
     Indication: OVARIAN CANCER
     Dosage: LAST DOSE PRIOR TO SAE: 04/MAR/2014
     Route: 042
     Dates: start: 20131113
  4. BUPRENORPHINE [Concomitant]
     Active Substance: BUPRENORPHINE
     Indication: BACK PAIN
     Route: 048
     Dates: start: 20120622, end: 20120622

REACTIONS (2)
  - Hyperkalaemia [Not Recovered/Not Resolved]
  - Disturbance in attention [Recovered/Resolved]

NARRATIVE: CASE EVENT DATE: 20140622
